FAERS Safety Report 6879029-X (Version None)
Quarter: 2010Q3

REPORT INFORMATION
  Report Type: 
  Country: None (occurrence: None)
  Receive Date: 20100728
  Receipt Date: 20100722
  Transmission Date: 20110219
  Serious: Yes (Death, Other)
  Sender: FDA-Public Use
  Company Number: PHHY2010JP39774

PATIENT
  Age: 72 Year
  Sex: Female

DRUGS (8)
  1. NEORAL [Suspect]
     Indication: NEPHROTIC SYNDROME
     Dosage: 100 MG/DAY
     Route: 048
     Dates: start: 20100525, end: 20100613
  2. NEORAL [Suspect]
     Indication: FOCAL SEGMENTAL GLOMERULOSCLEROSIS
     Dosage: 1 ML, UNK
     Route: 048
     Dates: start: 20100613, end: 20100616
  3. NEORAL [Suspect]
  4. DOGMATYL [Suspect]
     Dosage: 50 MG/DAY
     Route: 048
  5. PREDONINE [Concomitant]
     Dosage: 40 MG, UNK
     Route: 048
  6. OLMESARTAN MEDOXOMIL [Concomitant]
     Dosage: 10 MG, UNK
     Route: 048
  7. SIMVASTATIN [Concomitant]
     Dosage: 10 MG, UNK
     Route: 048
  8. PERSANTINE [Concomitant]
     Route: 048

REACTIONS (10)
  - ALTERED STATE OF CONSCIOUSNESS [None]
  - ANTIBIOTIC RESISTANT STAPHYLOCOCCUS TEST POSITIVE [None]
  - BLOOD ALBUMIN DECREASED [None]
  - CEREBRAL ISCHAEMIA [None]
  - HEPATIC FUNCTION ABNORMAL [None]
  - ORAL ADMINISTRATION COMPLICATION [None]
  - PNEUMONIA [None]
  - SOMNOLENCE [None]
  - TOXIC ENCEPHALOPATHY [None]
  - UNRESPONSIVE TO STIMULI [None]
